FAERS Safety Report 25628675 (Version 1)
Quarter: 2025Q3

REPORT INFORMATION
  Report Type: Spontaneous
  Country: US (occurrence: US)
  Receive Date: 20250731
  Receipt Date: 20250731
  Transmission Date: 20251021
  Serious: No
  Sender: Tarsus Pharmaceuticals
  Company Number: US-TARSUS PHARMACEUTICALS-TSP-US-2025-000519

PATIENT

DRUGS (4)
  1. XDEMVY [Suspect]
     Active Substance: LOTILANER
     Indication: Arthropod infestation
     Route: 047
     Dates: start: 20250515, end: 20250623
  2. SYNTHROID [Concomitant]
     Active Substance: LEVOTHYROXINE SODIUM
     Indication: Product used for unknown indication
     Route: 065
  3. EYLEA [Concomitant]
     Active Substance: AFLIBERCEPT
     Indication: Product used for unknown indication
     Route: 065
  4. B12 [Concomitant]
     Indication: Product used for unknown indication
     Route: 065

REACTIONS (5)
  - Vision blurred [Recovered/Resolved]
  - Condition aggravated [Recovered/Resolved]
  - Eye irritation [Recovering/Resolving]
  - Eye pain [Recovering/Resolving]
  - Wrong technique in product usage process [Unknown]
